FAERS Safety Report 5056355-0 (Version None)
Quarter: 2006Q3

REPORT INFORMATION
  Report Type: 
  Country: None (occurrence: None)
  Receive Date: 20060717
  Receipt Date: 20060711
  Transmission Date: 20061208
  Serious: Yes (Hospitalization)
  Sender: FDA-Public Use
  Company Number: HQWYE408420MAR06

PATIENT
  Age: 44 Year
  Sex: Male

DRUGS (3)
  1. RAPAMUNE [Suspect]
     Indication: PROPHYLAXIS AGAINST TRANSPLANT REJECTION
     Dosage: 2 MG 2X PER 1 DAY
     Route: 048
     Dates: start: 20051026, end: 20060401
  2. CELLCEPT [Concomitant]
  3. PREDNISOLONE [Concomitant]

REACTIONS (20)
  - ALANINE AMINOTRANSFERASE INCREASED [None]
  - ASPARTATE AMINOTRANSFERASE INCREASED [None]
  - ATELECTASIS [None]
  - BLOOD ALKALINE PHOSPHATASE INCREASED [None]
  - CHOLECYSTITIS [None]
  - EOSINOPHILIA [None]
  - HYPOXIA [None]
  - IMMUNOSUPPRESSANT DRUG LEVEL DECREASED [None]
  - IMMUNOSUPPRESSANT DRUG LEVEL INCREASED [None]
  - LUNG CONSOLIDATION [None]
  - MARROW HYPERPLASIA [None]
  - NEPHROLITHIASIS [None]
  - PLEURAL FIBROSIS [None]
  - PNEUMONITIS [None]
  - POSTOPERATIVE ILEUS [None]
  - PULMONARY CALCIFICATION [None]
  - PULMONARY CONGESTION [None]
  - RENAL CYST [None]
  - SEPSIS [None]
  - THROMBOCYTOPENIA [None]
